FAERS Safety Report 25942631 (Version 1)
Quarter: 2025Q4

REPORT INFORMATION
  Report Type: Spontaneous
  Country: US (occurrence: US)
  Receive Date: 20251021
  Receipt Date: 20251021
  Transmission Date: 20260117
  Serious: No
  Sender: SANOFI AVENTIS
  Company Number: US-SA-2025SA310183

PATIENT
  Age: 48 Year
  Sex: Male

DRUGS (3)
  1. ELOCTATE [Suspect]
     Active Substance: EFMOROCTOCOG ALFA
     Indication: Factor VIII deficiency
     Dosage: 5000 U, PRN
     Route: 042
     Dates: start: 201209
  2. ELOCTATE [Suspect]
     Active Substance: EFMOROCTOCOG ALFA
     Indication: Factor VIII deficiency
     Dosage: 5000 U, PRN
     Route: 042
     Dates: start: 201209
  3. HEMLIBRA [Concomitant]
     Active Substance: EMICIZUMAB-KXWH
     Indication: Prophylaxis
     Dosage: UNK

REACTIONS (1)
  - Spontaneous haemorrhage [Recovered/Resolved]

NARRATIVE: CASE EVENT DATE: 20251001
